FAERS Safety Report 25262981 (Version 1)
Quarter: 2025Q2

REPORT INFORMATION
  Report Type: Spontaneous
  Country: IL (occurrence: IL)
  Receive Date: 20250502
  Receipt Date: 20250502
  Transmission Date: 20250716
  Serious: Yes (Other)
  Sender: ADAPTIS PHARMA INDIA
  Company Number: IL-Adaptis Pharma Private Limited-2176050

PATIENT
  Age: 37 Year
  Sex: Female

DRUGS (1)
  1. LEVETIRACETAM [Suspect]
     Active Substance: LEVETIRACETAM
     Indication: Generalised tonic-clonic seizure

REACTIONS (1)
  - Seizure [Recovered/Resolved]
